FAERS Safety Report 12348768 (Version 5)
Quarter: 2017Q1

REPORT INFORMATION
  Report Type: Spontaneous
  Country: US (occurrence: US)
  Receive Date: 20160509
  Receipt Date: 20170105
  Transmission Date: 20170428
  Serious: No
  Sender: FDA-Public Use
  Company Number: US-PFIZER INC-2016216671

PATIENT
  Age: 54 Year
  Sex: Female

DRUGS (6)
  1. LYRICA [Suspect]
     Active Substance: PREGABALIN
     Indication: NERVE INJURY
     Dosage: 75 MG, 3X/DAY
     Route: 048
     Dates: start: 201509
  2. LIDODERM [Concomitant]
     Active Substance: LIDOCAINE
     Dosage: 5%, 1 PATCH ONTO SKIN EVERY DAY ONCE DAILY AS NEEDED (ON UP TO 12 HRS, OFF 12 HRS)
     Route: 061
  3. VOLTAREN [Concomitant]
     Active Substance: DICLOFENAC SODIUM
     Dosage: 2 G, 4X/DAY
     Route: 061
  4. DULOXETINE. [Concomitant]
     Active Substance: DULOXETINE
     Dosage: UNK
     Dates: start: 2014
  5. ULTRAM [Concomitant]
     Active Substance: TRAMADOL HYDROCHLORIDE
     Indication: PAIN
     Dosage: 50 MG, 4X/DAY AS NEEDED
     Route: 048
  6. VOLTAREN [Concomitant]
     Active Substance: DICLOFENAC SODIUM
     Dosage: 2 G, DAILY
     Route: 061

REACTIONS (3)
  - Pain [Unknown]
  - Malaise [Unknown]
  - Intentional product misuse [Unknown]
